FAERS Safety Report 25264873 (Version 1)
Quarter: 2025Q2

REPORT INFORMATION
  Report Type: Spontaneous
  Country: US (occurrence: None)
  Receive Date: 20250502
  Receipt Date: 20250502
  Transmission Date: 20250716
  Serious: No
  Sender: FDA-CTU
  Company Number: None

PATIENT
  Age: 45 Year
  Sex: Female

DRUGS (1)
  1. DUPIXENT [Suspect]
     Active Substance: DUPILUMAB
     Route: 058
     Dates: start: 20240322, end: 20250408

REACTIONS (3)
  - Dry eye [None]
  - Eye pruritus [None]
  - Dry skin [None]

NARRATIVE: CASE EVENT DATE: 20250502
